FAERS Safety Report 19799062 (Version 2)
Quarter: 2021Q4

REPORT INFORMATION
  Report Type: Spontaneous
  Country: UY (occurrence: UY)
  Receive Date: 20210907
  Receipt Date: 20211001
  Transmission Date: 20220303
  Serious: Yes (Death, Other)
  Sender: FDA-Public Use
  Company Number: UY-BAYER-2021-195431

PATIENT
  Age: 42 Year
  Sex: Male
  Weight: 123 kg

DRUGS (8)
  1. GADOBUTROL [Suspect]
     Active Substance: GADOBUTROL
     Indication: Magnetic resonance imaging heart
     Dosage: 20 ML, ONCE
     Route: 042
     Dates: start: 20210813, end: 20210813
  2. DIGOXIN [Concomitant]
     Active Substance: DIGOXIN
  3. WARFARIN [Concomitant]
     Active Substance: WARFARIN
  4. CARVEROL [CHARCOAL, ACTIVATED] [Concomitant]
  5. SPIRONOLACTONE [Concomitant]
     Active Substance: SPIRONOLACTONE
  6. ENALAPRIL [Concomitant]
     Active Substance: ENALAPRIL
  7. RANITIDINE [Concomitant]
     Active Substance: RANITIDINE
  8. SERTRALINE [Concomitant]
     Active Substance: SERTRALINE HYDROCHLORIDE

REACTIONS (7)
  - Cardio-respiratory arrest [Fatal]
  - Pruritus [Fatal]
  - Respiratory distress [Fatal]
  - Cyanosis [Fatal]
  - Nausea [Fatal]
  - Dyspnoea [Fatal]
  - Ventricular fibrillation [Fatal]

NARRATIVE: CASE EVENT DATE: 20210813
